FAERS Safety Report 17677822 (Version 1)
Quarter: 2020Q2

REPORT INFORMATION
  Report Type: Spontaneous
  Country: US (occurrence: US)
  Receive Date: 20200416
  Receipt Date: 20200416
  Transmission Date: 20200714
  Serious: No
  Sender: FDA-Public Use
  Company Number: US-009507513-2004USA004019

PATIENT
  Age: 25 Year
  Sex: Female
  Weight: 97.51 kg

DRUGS (2)
  1. VITAMINS (UNSPECIFIED) [Concomitant]
     Active Substance: VITAMINS
  2. NUVARING [Suspect]
     Active Substance: ETHINYL ESTRADIOL\ETONOGESTREL
     Indication: CONTRACEPTION
     Dosage: SINGLE RING, STRENGTH: 0.015/0.12 (UNIT UNKNOWN)
     Route: 067
     Dates: start: 20200329

REACTIONS (1)
  - Menorrhagia [Not Recovered/Not Resolved]

NARRATIVE: CASE EVENT DATE: 20200330
